FAERS Safety Report 18445553 (Version 1)
Quarter: 2020Q4

REPORT INFORMATION
  Report Type: Spontaneous
  Country: US (occurrence: US)
  Receive Date: 20201029
  Receipt Date: 20201029
  Transmission Date: 20210114
  Serious: Yes (Hospitalization)
  Sender: FDA-Public Use
  Company Number: None

PATIENT
  Age: 52 Year
  Sex: Female

DRUGS (16)
  1. TIROSINT [Concomitant]
     Active Substance: LEVOTHYROXINE SODIUM
  2. ENBREL [Suspect]
     Active Substance: ETANERCEPT
     Indication: RHEUMATOID ARTHRITIS
     Route: 058
     Dates: start: 20201004
  3. FLUTICASONE. [Concomitant]
     Active Substance: FLUTICASONE
  4. OXAPROZIN. [Concomitant]
     Active Substance: OXAPROZIN
  5. FOLIC ACID. [Concomitant]
     Active Substance: FOLIC ACID
  6. HYDROXYCHLOR [Concomitant]
     Active Substance: HYDROXYCHLOROQUINE
  7. SIMVASTATIN. [Concomitant]
     Active Substance: SIMVASTATIN
  8. VIT C+ZINC [Concomitant]
  9. FISH OIL [Concomitant]
     Active Substance: FISH OIL
  10. MONTELUKAST [Concomitant]
     Active Substance: MONTELUKAST SODIUM
  11. TOLTERODINE [Concomitant]
     Active Substance: TOLTERODINE
  12. FLONASE ALGY [Concomitant]
  13. INTRAROSA SUP [Concomitant]
  14. LIOTHYRONINE [Concomitant]
     Active Substance: LIOTHYRONINE
  15. TYLENOL [Concomitant]
     Active Substance: ACETAMINOPHEN
  16. CETIRIZINE [Concomitant]
     Active Substance: CETIRIZINE HYDROCHLORIDE

REACTIONS (7)
  - Chest pain [None]
  - Back pain [None]
  - Dyspnoea [None]
  - Middle insomnia [None]
  - Body temperature increased [None]
  - Chest discomfort [None]
  - Odynophagia [None]

NARRATIVE: CASE EVENT DATE: 20201023
